FAERS Safety Report 11618369 (Version 1)
Quarter: 2015Q4

REPORT INFORMATION
  Report Type: Report from Study
  Country: GB (occurrence: GB)
  Receive Date: 20151012
  Receipt Date: 20151012
  Transmission Date: 20160304
  Serious: No
  Sender: FDA-Public Use
  Company Number: GB-LEO PHARMA-237117

PATIENT
  Age: 71 Year
  Sex: Male

DRUGS (1)
  1. PICATO [Suspect]
     Active Substance: INGENOL MEBUTATE
     Indication: ACTINIC KERATOSIS
     Dates: start: 20150916, end: 20150918

REACTIONS (6)
  - Application site scab [Recovered/Resolved]
  - Application site haemorrhage [Recovered/Resolved]
  - Drug administered at inappropriate site [Unknown]
  - Eye swelling [Recovered/Resolved]
  - Application site exfoliation [Recovered/Resolved]
  - Application site exfoliation [Recovering/Resolving]

NARRATIVE: CASE EVENT DATE: 20150918
